FAERS Safety Report 6907777-1 (Version None)
Quarter: 2010Q3

REPORT INFORMATION
  Report Type: 
  Country: None (occurrence: None)
  Receive Date: 20100805
  Receipt Date: 20100722
  Transmission Date: 20110219
  Serious: Yes (Hospitalization, Other)
  Sender: FDA-Public Use
  Company Number: ES-RANBAXY-2010RR-36574

PATIENT
  Age: 57 Year
  Sex: Male

DRUGS (3)
  1. IBUPROFEN [Suspect]
     Route: 048
  2. METAMIZOLE [Suspect]
  3. ASPIRIN [Suspect]
     Dosage: UNK MG, UNK

REACTIONS (3)
  - ACUTE MYOCARDIAL INFARCTION [None]
  - EOSINOPHILIA [None]
  - KOUNIS SYNDROME [None]
